FAERS Safety Report 12685264 (Version 3)
Quarter: 2016Q3

REPORT INFORMATION
  Report Type: Spontaneous
  Country: FR (occurrence: FR)
  Receive Date: 20160825
  Receipt Date: 20160912
  Transmission Date: 20161109
  Serious: Yes (Hospitalization)
  Sender: FDA-Public Use
  Company Number: PHHY2016FR113459

PATIENT
  Age: 77 Year
  Sex: Male

DRUGS (4)
  1. AMOXICILLIN. [Concomitant]
     Active Substance: AMOXICILLIN
     Indication: CHOLESTASIS
     Route: 065
  2. RIMACTAN SANDOZ [Suspect]
     Active Substance: RIFAMPIN
     Indication: ENDOCARDITIS
     Dosage: 1200 MG, QD
     Route: 065
     Dates: start: 20160428, end: 20160502
  3. LEVOFLOXACINE MYLAN//LEVOFLOXACIN HEMIHYDRATE [Suspect]
     Active Substance: LEVOFLOXACIN
     Indication: ENDOCARDITIS
     Dosage: 500 MG, QD
     Route: 065
     Dates: start: 20160428, end: 20160502
  4. ZYVOXID [Concomitant]
     Active Substance: LINEZOLID
     Indication: HYPERSENSITIVITY
     Route: 065

REACTIONS (1)
  - Blood bilirubin increased [Recovered/Resolved]

NARRATIVE: CASE EVENT DATE: 201604
